FAERS Safety Report 9752087 (Version 3)
Quarter: 2014Q1

REPORT INFORMATION
  Report Type: Spontaneous
  Country: DK (occurrence: DK)
  Receive Date: 20131213
  Receipt Date: 20140124
  Transmission Date: 20141002
  Serious: Yes (Other)
  Sender: FDA-Public Use
  Company Number: PHHY2013DK124380

PATIENT
  Age: 10 Year
  Sex: Female

DRUGS (2)
  1. ACLASTA [Suspect]
     Indication: OSTEOPOROSIS
     Dosage: UNK
     Route: 058
     Dates: start: 20131029
  2. MULTIVITAMIN//VITAMINS NOS [Concomitant]
     Dosage: UNK
     Route: 048

REACTIONS (5)
  - Incorrect route of drug administration [Recovered/Resolved]
  - Drug administered to patient of inappropriate age [Unknown]
  - Inappropriate schedule of drug administration [Unknown]
  - Injection site erythema [Unknown]
  - Injection site swelling [Unknown]
